FAERS Safety Report 7372733-9 (Version None)
Quarter: 2011Q1

REPORT INFORMATION
  Report Type: 
  Country: None (occurrence: None)
  Receive Date: 20110324
  Receipt Date: 20110323
  Transmission Date: 20110831
  Serious: Yes (Hospitalization)
  Sender: FDA-Public Use
  Company Number: GXKR2011DE01265

PATIENT
  Age: 50 Year
  Sex: Male
  Weight: 63 kg

DRUGS (2)
  1. MTX HEXAL [Suspect]
     Indication: POLYARTHRITIS
     Dosage: 15 MG, QW
     Route: 048
     Dates: start: 20100914
  2. PREDNISOLONE [Concomitant]
     Indication: POLYARTHRITIS
     Dosage: 5 MG, QD
     Route: 048
     Dates: start: 20100901

REACTIONS (2)
  - INTERVERTEBRAL DISC PROTRUSION [None]
  - BACK PAIN [None]
